FAERS Safety Report 19549245 (Version 1)
Quarter: 2021Q3

REPORT INFORMATION
  Report Type: Spontaneous
  Country: US (occurrence: US)
  Receive Date: 20210714
  Receipt Date: 20210714
  Transmission Date: 20211014
  Serious: No
  Sender: FDA-Public Use
  Company Number: US-PFIZER INC-2021641249

PATIENT
  Age: 58 Year
  Sex: Female
  Weight: 110.7 kg

DRUGS (1)
  1. SUTENT [Suspect]
     Active Substance: SUNITINIB MALATE
     Dosage: 50 MG, CYCLIC (50 MG DAILY FOR 14 DAYS)
     Route: 048

REACTIONS (5)
  - Fatigue [Recovering/Resolving]
  - Thyroid disorder [Unknown]
  - Blood pressure increased [Unknown]
  - Diarrhoea [Recovering/Resolving]
  - Dyspepsia [Unknown]
